FAERS Safety Report 9852771 (Version 2)
Quarter: 2014Q2

REPORT INFORMATION
  Report Type: Spontaneous
  Country: US (occurrence: US)
  Receive Date: 20140129
  Receipt Date: 20140522
  Transmission Date: 20141212
  Serious: Yes (Hospitalization, Other)
  Sender: FDA-Public Use
  Company Number: PHHY2014US009601

PATIENT
  Sex: Male

DRUGS (11)
  1. BACLOFEN INTRATHECAL [Suspect]
     Indication: MUSCLE SPASTICITY
     Dosage: 59.97 UG, DAILY
     Route: 037
  2. BACLOFEN INTRATHECAL [Suspect]
     Dosage: UNK UKN, UNK
     Route: 037
  3. BACLOFEN INTRATHECAL [Suspect]
     Dosage: 200 UG/ML, UNK
     Route: 037
  4. BACLOFEN INTRATHECAL [Suspect]
     Dosage: UNK UKN, UNK
     Route: 037
  5. CLONIDINE [Suspect]
     Dosage: UNK UKN, UNK
     Route: 048
  6. CLONIDINE [Suspect]
     Dosage: UNK UKN, UNK
     Route: 037
  7. CLONIDINE [Suspect]
     Dosage: 89.48 UKN, UNK
     Route: 037
  8. DILAUDID [Suspect]
     Dosage: UNK UKN, UNK
     Route: 037
  9. DILAUDID [Suspect]
     Dosage: 60 UG, DAILY
     Route: 037
  10. DILAUDID [Suspect]
     Dosage: UNK UKN, UNK
     Route: 037
  11. NUCYNTA [Concomitant]
     Dosage: 50 MG, UNK

REACTIONS (8)
  - Heart rate increased [Unknown]
  - Adrenal insufficiency [Unknown]
  - Neuropathy peripheral [Unknown]
  - Pain [Unknown]
  - Decreased appetite [Unknown]
  - Pain in extremity [Unknown]
  - Blood pressure increased [Unknown]
  - Drug withdrawal syndrome [Unknown]
